FAERS Safety Report 11216126 (Version 1)
Quarter: 2015Q2

REPORT INFORMATION
  Report Type: Spontaneous
  Country: US (occurrence: None)
  Receive Date: 20150623
  Receipt Date: 20150623
  Transmission Date: 20150821
  Serious: Yes (Hospitalization)
  Sender: FDA-Public Use
  Company Number: None

PATIENT
  Age: 37 Year
  Sex: Female
  Weight: 49.44 kg

DRUGS (16)
  1. DESONIDE 0.05% CREAM [Concomitant]
  2. CALCIUM ACETATE. [Concomitant]
     Active Substance: CALCIUM ACETATE
  3. CANAGLIFLOZIN [Suspect]
     Active Substance: CANAGLIFLOZIN
     Route: 048
     Dates: start: 20150604, end: 20150607
  4. CLOTRIMAZOLE 1% CREAM? [Concomitant]
  5. SAVELLA TITRATION PACK [Concomitant]
  6. BRIMONIDINE [Concomitant]
     Active Substance: BRIMONIDINE\BRIMONIDINE TARTRATE
  7. TIZANIDINE (TIZANIDINE) [Concomitant]
     Active Substance: TIZANIDINE
  8. ASPIRIN. [Concomitant]
     Active Substance: ASPIRIN
  9. DULOXETINE [Concomitant]
     Active Substance: DULOXETINE
  10. METFORMIN [Concomitant]
     Active Substance: METFORMIN HYDROCHLORIDE
  11. HYDROXYZINE [Concomitant]
     Active Substance: HYDROXYZINE\HYDROXYZINE HYDROCHLORIDE
  12. METOPROLOL TARTRATE. [Concomitant]
     Active Substance: METOPROLOL TARTRATE
  13. BUPROPION [Concomitant]
     Active Substance: BUPROPION
  14. ATORVASTATIN [Concomitant]
     Active Substance: ATORVASTATIN
  15. HYZAAR [Concomitant]
     Active Substance: HYDROCHLOROTHIAZIDE\LOSARTAN POTASSIUM
  16. CYCLAFEM [Concomitant]

REACTIONS (3)
  - Ketoacidosis [None]
  - Acute kidney injury [None]
  - Anion gap [None]

NARRATIVE: CASE EVENT DATE: 20150606
